FAERS Safety Report 9702151 (Version 3)
Quarter: 2015Q2

REPORT INFORMATION
  Report Type: Spontaneous
  Country: US (occurrence: US)
  Receive Date: 20131121
  Receipt Date: 20150527
  Transmission Date: 20150821
  Serious: No
  Sender: FDA-Public Use
  Company Number: US-009507513-1311USA002567

PATIENT
  Sex: Female
  Weight: 98.87 kg

DRUGS (7)
  1. RIBASPHERE RIBAPAK [Suspect]
     Active Substance: RIBAVIRIN
     Dosage: 800/DAY
  2. ZYRTEC [Concomitant]
     Active Substance: CETIRIZINE HYDROCHLORIDE
     Route: 048
  3. VITAMINS (UNSPECIFIED) [Concomitant]
     Active Substance: VITAMINS
     Route: 048
  4. PEGINTRON [Suspect]
     Active Substance: PEGINTERFERON ALFA-2B
     Dosage: INJECT 0.4 ML, QW, AS DIRECTED
  5. VENTOLIN HFA AER [Concomitant]
  6. IRON (UNSPECIFIED) [Concomitant]
     Active Substance: IRON
     Route: 048
  7. ROGAINE SOL 2% [Concomitant]

REACTIONS (1)
  - Stomatitis [Recovered/Resolved]
